FAERS Safety Report 6138056-0 (Version None)
Quarter: 2009Q1

REPORT INFORMATION
  Report Type: 
  Country: None (occurrence: None)
  Receive Date: 20090327
  Receipt Date: 20090327
  Transmission Date: 20090719
  Serious: Yes (Disabling)
  Sender: FDA-Public Use
  Company Number: None

PATIENT
  Age: 42 Year
  Sex: Male
  Weight: 81.6475 kg

DRUGS (1)
  1. BIAXIN XL [Suspect]
     Indication: BRONCHITIS
     Dosage: 500 MG 2X PER DAY PO
     Route: 048
     Dates: start: 20090314, end: 20090318

REACTIONS (3)
  - DELUSION [None]
  - MANIA [None]
  - PERSONALITY CHANGE [None]
